FAERS Safety Report 5214289-2 (Version None)
Quarter: 2007Q1

REPORT INFORMATION
  Report Type: 
  Country: None (occurrence: None)
  Receive Date: 20070122
  Receipt Date: 20070109
  Transmission Date: 20070707
  Serious: Yes (Hospitalization, Other)
  Sender: FDA-Public Use
  Company Number: PHBS2006JP19807

PATIENT
  Age: 44 Year
  Sex: Male

DRUGS (1)
  1. RITALIN [Suspect]
     Indication: DEPRESSION
     Dosage: 2 DF, UNK
     Route: 048

REACTIONS (6)
  - DEPRESSION [None]
  - DRUG DEPENDENCE [None]
  - INTENTIONAL OVERDOSE [None]
  - PNEUMONIA ASPIRATION [None]
  - PSYCHOTHERAPY [None]
  - PYREXIA [None]
